FAERS Safety Report 5410020-6 (Version None)
Quarter: 2007Q3

REPORT INFORMATION
  Report Type: 
  Country: None (occurrence: None)
  Receive Date: 20070713
  Receipt Date: 20070604
  Transmission Date: 20080115
  Serious: No
  Sender: FDA-Public Use
  Company Number: 2007SP002097

PATIENT
  Age: 57 Year
  Sex: Female
  Weight: 87.0906 kg

DRUGS (7)
  1. LUNESTA [Suspect]
     Indication: INSOMNIA
     Dosage: 4 MG;HS;ORAL; 3 MG; HS; ORAL; 6 MG; HS; ORAL; 9 MG; 1X; ORAL; 3 MG; HS; ORAL
     Route: 048
     Dates: start: 20050901, end: 20060201
  2. LUNESTA [Suspect]
     Indication: INSOMNIA
     Dosage: 4 MG;HS;ORAL; 3 MG; HS; ORAL; 6 MG; HS; ORAL; 9 MG; 1X; ORAL; 3 MG; HS; ORAL
     Route: 048
     Dates: start: 20070201, end: 20070528
  3. LUNESTA [Suspect]
     Indication: INSOMNIA
     Dosage: 4 MG;HS;ORAL; 3 MG; HS; ORAL; 6 MG; HS; ORAL; 9 MG; 1X; ORAL; 3 MG; HS; ORAL
     Route: 048
     Dates: start: 20070529, end: 20070602
  4. LUNESTA [Suspect]
     Indication: INSOMNIA
     Dosage: 4 MG;HS;ORAL; 3 MG; HS; ORAL; 6 MG; HS; ORAL; 9 MG; 1X; ORAL; 3 MG; HS; ORAL
     Route: 048
     Dates: start: 20070603, end: 20070603
  5. LUNESTA [Suspect]
     Indication: INSOMNIA
     Dosage: 4 MG;HS;ORAL; 3 MG; HS; ORAL; 6 MG; HS; ORAL; 9 MG; 1X; ORAL; 3 MG; HS; ORAL
     Route: 048
     Dates: start: 20070604
  6. AMLODIPINE [Concomitant]
  7. ELAVIL [Concomitant]

REACTIONS (3)
  - DRUG INEFFECTIVE [None]
  - DYSGEUSIA [None]
  - MIDDLE INSOMNIA [None]
